FAERS Safety Report 8644671 (Version 3)
Quarter: 2012Q4

REPORT INFORMATION
  Report Type: 
  Country: CA (occurrence: CA)
  Receive Date: 20120702
  Receipt Date: 20121218
  Transmission Date: 20130627
  Serious: Yes (Other)
  Sender: FDA-Public Use
  Company Number: CA-ROCHE-1082493

PATIENT
  Age: 48 Year
  Sex: Female

DRUGS (14)
  1. XOLAIR [Suspect]
     Indication: ASTHMA
     Route: 058
     Dates: start: 20120418
  2. XOLAIR [Suspect]
     Route: 058
     Dates: start: 20120522
  3. ADVAIR [Concomitant]
  4. SPIRIVA [Concomitant]
  5. VENTOLIN [Concomitant]
  6. INSULIN [Concomitant]
  7. NASONEX [Concomitant]
  8. SIMVASTATIN [Concomitant]
  9. COZAAR [Concomitant]
  10. HYDROCHLOROTHIAZIDE [Concomitant]
  11. LOSEC (CANADA) [Concomitant]
  12. ZYRTEC [Concomitant]
  13. CYMBALTA [Concomitant]
  14. ZOCOR [Concomitant]

REACTIONS (19)
  - Throat irritation [Unknown]
  - Urticaria [Unknown]
  - Productive cough [Unknown]
  - Oral pruritus [Recovered/Resolved]
  - Erythema [Unknown]
  - Feeling hot [Unknown]
  - Asthma [Recovered/Resolved]
  - Chest discomfort [Unknown]
  - Lung infection [Unknown]
  - Feeling abnormal [Recovered/Resolved]
  - Eye pruritus [Recovered/Resolved]
  - Cough [Unknown]
  - Pruritus generalised [Recovered/Resolved]
  - Injection site pain [Unknown]
  - Vomiting [Unknown]
  - Diarrhoea [Unknown]
  - Dehydration [Unknown]
  - Fatigue [Unknown]
  - Convulsion [Unknown]
